FAERS Safety Report 21497018 (Version 1)
Quarter: 2022Q4

REPORT INFORMATION
  Report Type: Spontaneous
  Country: US (occurrence: US)
  Receive Date: 20221023
  Receipt Date: 20221023
  Transmission Date: 20230112
  Serious: Yes (Hospitalization, Other)
  Sender: FDA-Public Use
  Company Number: US-BAXTER-2022BAX022124

PATIENT
  Age: 35 Year
  Sex: Male

DRUGS (1)
  1. LEVOFLOXACIN [Suspect]
     Active Substance: LEVOFLOXACIN
     Indication: Post procedural persistent drain fluid
     Dosage: 2 DOSES
     Route: 065

REACTIONS (8)
  - Granulomatosis with polyangiitis [Recovering/Resolving]
  - Raynaud^s phenomenon [Recovering/Resolving]
  - Purpura [Recovering/Resolving]
  - Joint swelling [Recovering/Resolving]
  - Swelling of eyelid [Recovering/Resolving]
  - Haemoptysis [Recovering/Resolving]
  - Condition aggravated [Recovering/Resolving]
  - Dyspnoea [Recovering/Resolving]
